FAERS Safety Report 9160301 (Version 2)
Quarter: 2013Q1

REPORT INFORMATION
  Report Type: Spontaneous
  Country: US (occurrence: US)
  Receive Date: 20130313
  Receipt Date: 20130315
  Transmission Date: 20140127
  Serious: Yes (Life-Threatening, Hospitalization, Other)
  Sender: FDA-Public Use
  Company Number: US-ASTRAZENECA-2013SE15677

PATIENT
  Age: 1004 Day
  Sex: Male
  Weight: 12 kg

DRUGS (28)
  1. SYNAGIS [Suspect]
     Route: 030
     Dates: start: 20121217
  2. SYNAGIS [Suspect]
     Dosage: 100MG VIALS
     Route: 030
     Dates: start: 20130117
  3. ALBUTEROL HFA [Concomitant]
     Indication: ASTHMA
     Dosage: 6-8 PUFFS, 15 MG/5 ML, Q4H TO TAKE WITH SPACER
     Route: 055
     Dates: start: 20130306
  4. PREDNISONE [Concomitant]
     Indication: RESPIRATORY SYNCYTIAL VIRUS INFECTION
     Dates: start: 20130303, end: 20130308
  5. PREDNISONE [Concomitant]
     Indication: WHEEZING
     Dates: start: 20130303, end: 20130308
  6. FLUTICASONE [Concomitant]
     Indication: ASTHMA
  7. OMEPRAZOLE [Concomitant]
     Indication: GASTROOESOPHAGEAL REFLUX DISEASE
     Dosage: 2 MG/ML, ONES A DAY
     Route: 048
     Dates: start: 20130303
  8. OMEPRAZOLE [Concomitant]
     Indication: GASTROOESOPHAGEAL REFLUX DISEASE
     Dosage: 10 MG, 20 MG , ONES A DAY
     Route: 048
  9. UNASYN IV [Concomitant]
     Dosage: 600 MG, 30 ML, 30 ML/HR, PIGGYBACK, ONCE
     Route: 042
  10. ALBUTEROL NEBULISATION [Concomitant]
     Indication: WHEEZING
     Dosage: 5 MG, 1 ML NEB ONCE
  11. ALBUTEROL NEBULISATION [Concomitant]
     Indication: WHEEZING
     Dosage: 2.5 MG/3 ML, Q 6 HOURS
     Route: 055
  12. ALBUTEROL NEBULISATION [Concomitant]
     Indication: WHEEZING
     Dosage: 2.5 MG/3 ML, PRN
     Route: 055
  13. ALBUTEROL NEBULISATION [Concomitant]
     Indication: WHEEZING
     Dosage: EVERY MORNING, AS NEEDED
  14. IPRATROPIUM [Concomitant]
     Dosage: 0.5 MG, 2.5 ML NEB ONCE
  15. METHYL PREDNISOLONE [Concomitant]
     Dosage: 25 MG, ONCE
     Route: 042
  16. FLOVENT HFA [Concomitant]
     Dosage: 110 MCG, 1 PUFF, EVERY 12 HOURS WITH ADAPTER
     Route: 055
  17. FLOVENT HFA [Concomitant]
     Route: 055
  18. MULTIPLE VITAMINES WITH IRON [Concomitant]
     Route: 048
  19. NEOCATE [Concomitant]
     Dosage: 240 ML, 4 BOLUS FEEDS DURING DAY VIA GTUBE,15-20 MILILITRE FREE WATER FLUSHES BETWEEN OR AFTER FEED
  20. PRELONE [Concomitant]
     Dosage: 15 MG/5 ML, ONES A DAY
     Route: 048
  21. ALBUTEROL CFC [Concomitant]
     Indication: WHEEZING
     Dosage: 6 PUFFS, Q6 HOURS,
     Route: 055
  22. ALBUTEROL CFC [Concomitant]
     Indication: WHEEZING
     Dosage: 6 PUFFS, Q4 HOURS
     Route: 055
  23. ALBUTEROL CFC [Concomitant]
     Indication: WHEEZING
     Dosage: 2 EACH PRN
     Route: 055
  24. IBUPROFEN [Concomitant]
     Indication: PYREXIA
     Dosage: 100 MG/5 ML, Q 6 HOURS
     Route: 048
  25. IBUPROFEN [Concomitant]
     Indication: PYREXIA
     Dosage: 100 MG/5 ML, PRN
     Route: 048
  26. NYSTATIN [Concomitant]
     Dosage: 100 000 UNITS/G BID
     Route: 061
  27. TOBRAMYCIN [Concomitant]
     Dosage: 40 MG/ML, 80 MG (2ML) BID
  28. MULTIVITAMIN [Concomitant]
     Dosage: EVERY DAY

REACTIONS (2)
  - Treatment noncompliance [Unknown]
  - Respiratory syncytial virus bronchiolitis [Not Recovered/Not Resolved]
